FAERS Safety Report 4638040-X (Version None)
Quarter: 2005Q2

REPORT INFORMATION
  Report Type: 
  Country: None (occurrence: None)
  Receive Date: 20050418
  Receipt Date: 20040429
  Transmission Date: 20051028
  Serious: Yes (Hospitalization)
  Sender: FDA-Public Use
  Company Number: PHHO2004CH06193

PATIENT
  Age: 63 Year
  Sex: Female
  Weight: 58 kg

DRUGS (6)
  1. ENATEC [Concomitant]
  2. NORVASC [Concomitant]
  3. FOSAMAX [Concomitant]
  4. TAVEGYL [Concomitant]
  5. ZYRTEC [Concomitant]
  6. TAMOXIFEN CITRATE [Suspect]
     Indication: BREAST CANCER
     Route: 048
     Dates: start: 20000427, end: 20040414

REACTIONS (7)
  - BLEPHARITIS [None]
  - DERMATITIS CONTACT [None]
  - ECZEMA [None]
  - ECZEMA NUMMULAR [None]
  - ERYTHEMA [None]
  - TELANGIECTASIA [None]
  - URINARY TRACT INFECTION [None]
